FAERS Safety Report 6020708-4 (Version None)
Quarter: 2008Q4

REPORT INFORMATION
  Report Type: 
  Country: None (occurrence: None)
  Receive Date: 20081223
  Receipt Date: 20081223
  Transmission Date: 20090506
  Serious: No
  Sender: FDA-Public Use
  Company Number: None

PATIENT
  Sex: Female
  Weight: 87.3 kg

DRUGS (2)
  1. CYCLOPHOSPHAMIDE [Suspect]
     Dosage: 1188 MG
  2. DOXORUBICIN HYDROCHLORIDE [Suspect]
     Dosage: 119 MG

REACTIONS (1)
  - BLOOD GLUCOSE INCREASED [None]
